FAERS Safety Report 5518003-2 (Version None)
Quarter: 2007Q4

REPORT INFORMATION
  Report Type: 
  Country: None (occurrence: None)
  Receive Date: 20071115
  Receipt Date: 20071113
  Transmission Date: 20080405
  Serious: Yes (Hospitalization)
  Sender: FDA-Public Use
  Company Number: IT-BRISTOL-MYERS SQUIBB COMPANY-13980255

PATIENT
  Sex: Female

DRUGS (1)
  1. WARFARIN SODIUM [Suspect]

REACTIONS (5)
  - COAGULOPATHY [None]
  - CONFUSIONAL STATE [None]
  - ECCHYMOSIS [None]
  - HYPOGLYCAEMIA [None]
  - PSYCHOMOTOR HYPERACTIVITY [None]
